FAERS Safety Report 22351676 (Version 1)
Quarter: 2023Q2

REPORT INFORMATION
  Report Type: Spontaneous
  Country: US (occurrence: None)
  Receive Date: 20230522
  Receipt Date: 20230522
  Transmission Date: 20230721
  Serious: No
  Sender: FDA-Public Use
  Company Number: None

PATIENT

DRUGS (2)
  1. DONEPEZIL [Suspect]
     Active Substance: DONEPEZIL
  2. DONEPEZIL [Suspect]
     Active Substance: DONEPEZIL

REACTIONS (4)
  - Product prescribing error [None]
  - Incorrect dose administered [None]
  - Dizziness [None]
  - Therapy cessation [None]
